FAERS Safety Report 8159119-4 (Version None)
Quarter: 2012Q1

REPORT INFORMATION
  Report Type: 
  Country: None (occurrence: None)
  Receive Date: 20120223
  Receipt Date: 20120213
  Transmission Date: 20120608
  Serious: Yes (Other)
  Sender: FDA-Public Use
  Company Number: US-ELI_LILLY_AND_COMPANY-US200910006009

PATIENT

DRUGS (15)
  1. PAXIL [Concomitant]
  2. PROZAC [Concomitant]
  3. CLONIDINE [Concomitant]
  4. HALDOL [Concomitant]
  5. DOXEPIN HCL [Concomitant]
  6. VALPROIC ACID [Concomitant]
  7. REMERON [Concomitant]
  8. GEODON [Concomitant]
  9. ASPIRIN [Concomitant]
  10. RISPERDAL [Concomitant]
  11. ATIVAN [Concomitant]
  12. STELAZINE [Concomitant]
  13. DEPAKOTE [Concomitant]
  14. NORTRIPTYLINE HYDROCHLORIDE [Concomitant]
  15. ZYPREXA [Suspect]
     Indication: SCHIZOPHRENIA
     Dosage: 1 D/F, UNK

REACTIONS (20)
  - PERICARDITIS [None]
  - TYPE 1 DIABETES MELLITUS [None]
  - HYPERLIPIDAEMIA [None]
  - ORAL HERPES [None]
  - TINEA VERSICOLOUR [None]
  - TINEA PEDIS [None]
  - LIVER FUNCTION TEST ABNORMAL [None]
  - DRUG INEFFECTIVE [None]
  - UPPER RESPIRATORY TRACT INFECTION [None]
  - HYPERTENSION [None]
  - WEIGHT INCREASED [None]
  - SINUS TACHYCARDIA [None]
  - PAIN IN EXTREMITY [None]
  - BRONCHITIS [None]
  - GASTROOESOPHAGEAL REFLUX DISEASE [None]
  - CONVULSION [None]
  - NON-CARDIAC CHEST PAIN [None]
  - TINEA CRURIS [None]
  - VIITH NERVE PARALYSIS [None]
  - DERMATITIS CONTACT [None]
